FAERS Safety Report 8784387 (Version 1)
Quarter: 2012Q4

REPORT INFORMATION
  Report Type: 
  Country: IT (occurrence: IT)
  Receive Date: 20120913
  Receipt Date: 20120913
  Transmission Date: 20130627
  Serious: Yes (Hospitalization)
  Sender: FDA-Public Use
  Company Number: IT-BRISTOL-MYERS SQUIBB COMPANY-16927725

PATIENT
  Age: 80 Year
  Sex: Female

DRUGS (6)
  1. COUMADIN [Suspect]
     Indication: ATRIAL FIBRILLATION
     Route: 048
     Dates: start: 20120101, end: 20120801
  2. DIGOXIN [Concomitant]
     Indication: CARDIAC FAILURE
     Route: 048
     Dates: start: 20120101, end: 20120801
  3. BISOPROLOL HEMIFUMARATE [Concomitant]
     Dosage: 1 df:1 dose
     Route: 048
     Dates: start: 20120101, end: 20120801
  4. RAMIPRIL [Concomitant]
     Route: 048
     Dates: start: 20120101, end: 20120801
  5. LASIX [Concomitant]
     Dosage: tabs
     Route: 048
     Dates: start: 20120101, end: 20120801
  6. LASITONE [Concomitant]
     Dosage: 1df= rigid caps 25mg+37mg
     Route: 048
     Dates: start: 20120101, end: 20120801

REACTIONS (2)
  - Cardiac failure congestive [Unknown]
  - International normalised ratio increased [Unknown]
